FAERS Safety Report 7203953-1 (Version None)
Quarter: 2010Q4

REPORT INFORMATION
  Report Type: 
  Country: None (occurrence: None)
  Receive Date: 20101230
  Receipt Date: 20101223
  Transmission Date: 20110411
  Serious: Yes (Other)
  Sender: FDA-Public Use
  Company Number: US-PFIZER INC-2010179519

PATIENT
  Sex: Male

DRUGS (5)
  1. VENLAFAXINE HCL [Suspect]
     Dosage: 25 MG, UNK
     Dates: start: 20101221, end: 20101223
  2. XANAX [Concomitant]
  3. ZYRTEC [Concomitant]
  4. ANDROGEL [Concomitant]
  5. OMEPRAZOLE [Concomitant]

REACTIONS (6)
  - DEPRESSION [None]
  - DIZZINESS [None]
  - HEART RATE INCREASED [None]
  - MALAISE [None]
  - PALPITATIONS [None]
  - SOMNOLENCE [None]
